FAERS Safety Report 12341049 (Version 2)
Quarter: 2016Q4

REPORT INFORMATION
  Report Type: Spontaneous
  Country: US (occurrence: US)
  Receive Date: 20160506
  Receipt Date: 20161110
  Transmission Date: 20170207
  Serious: No
  Sender: FDA-Public Use
  Company Number: US-CELGENEUS-USA-2016048309

PATIENT
  Sex: Male

DRUGS (3)
  1. CLOBEX [Concomitant]
     Active Substance: CLOBETASOL PROPIONATE
     Indication: PSORIASIS
     Route: 061
     Dates: start: 201505
  2. VECTICAL [Concomitant]
     Active Substance: CALCITRIOL
     Indication: PSORIASIS
     Route: 061
     Dates: start: 201505
  3. OTEZLA [Suspect]
     Active Substance: APREMILAST
     Indication: PUSTULAR PSORIASIS
     Dosage: 60 MILLIGRAM
     Route: 048
     Dates: start: 20150528

REACTIONS (2)
  - Diarrhoea [Unknown]
  - Abdominal discomfort [Unknown]
